FAERS Safety Report 8664737 (Version 2)
Quarter: 2013Q4

REPORT INFORMATION
  Report Type: Spontaneous
  Country: JP (occurrence: JP)
  Receive Date: 20120713
  Receipt Date: 20131105
  Transmission Date: 20140711
  Serious: Yes (Life-Threatening, Hospitalization)
  Sender: FDA-Public Use
  Company Number: JP-009507513-1207JPN003648

PATIENT
  Age: 84 Year
  Sex: Male
  Weight: 49 kg

DRUGS (11)
  1. JANUVIA TABLETS 50MG [Suspect]
     Indication: BLOOD GLUCOSE ABNORMAL
     Dosage: 50 MG, QD
     Route: 048
     Dates: start: 201203, end: 201205
  2. JANUVIA TABLETS 50MG [Suspect]
     Indication: DIABETES MELLITUS
     Route: 048
     Dates: start: 20120302, end: 20120524
  3. RENIVEZE [Concomitant]
     Indication: HYPERTENSION
     Dosage: DAILY DOSE UNKNOWN
     Route: 065
     Dates: start: 2000
  4. RENIVEZE [Concomitant]
     Route: 048
     Dates: start: 200009
  5. CRESTOR [Concomitant]
     Indication: HYPERLIPIDAEMIA
     Dosage: DAILY DOSE UNKNOWN
     Route: 065
  6. CRESTOR [Concomitant]
     Route: 048
  7. CASODEX [Concomitant]
     Route: 048
  8. FLIVAS [Concomitant]
     Dosage: 75 MG, QD
     Route: 048
  9. PERINSYL [Concomitant]
     Dosage: 4 MG, QD
     Route: 048
  10. MAGMITT [Concomitant]
     Route: 048
  11. OPAPROSMON [Concomitant]
     Dosage: 5 MICROGRAM, BID
     Route: 048

REACTIONS (2)
  - Ileus [Recovered/Resolved]
  - Mechanical ileus [Recovering/Resolving]
